FAERS Safety Report 13586360 (Version 4)
Quarter: 2017Q2

REPORT INFORMATION
  Report Type: Spontaneous
  Country: IT (occurrence: IT)
  Receive Date: 20170526
  Receipt Date: 20170602
  Transmission Date: 20170830
  Serious: Yes (Other)
  Sender: FDA-Public Use
  Company Number: IT-TEVA-771311ACC

PATIENT
  Age: 35 Year
  Sex: Male
  Weight: 120 kg

DRUGS (5)
  1. LEVOFLOXACIN. [Suspect]
     Active Substance: LEVOFLOXACIN
     Indication: PNEUMONIA
     Dosage: 500 MILLIGRAM DAILY;
     Dates: start: 20170319, end: 20170402
  2. M-M-RVAXPRO [Suspect]
     Active Substance: MEASLES VIRUS STRAIN ENDERS^ ATTENUATED EDMONSTON LIVE ANTIGEN\MUMPS VIRUS STRAIN B LEVEL JERYL LYNN LIVE ANTIGEN\RUBELLA VIRUS STRAIN WISTAR RA 27/3 LIVE ANTIGEN
     Indication: MEASLES IMMUNISATION
     Dosage: .5 ML TOTAL
     Route: 030
     Dates: start: 20170315
  3. VARILRIX [Suspect]
     Active Substance: VARICELLA-ZOSTER VIRUS STRAIN OKA/MERCK LIVE ANTIGEN
     Indication: VARICELLA IMMUNISATION
     Dosage: .5 ML TOTAL
     Route: 030
     Dates: start: 20170315, end: 20170315
  4. LEVOFLOXACIN. [Suspect]
     Active Substance: LEVOFLOXACIN
     Dosage: TIME OF ADMINISTRATION ALWAYS AT 02:0 0 P.M
  5. TACHIPIRINA [Suspect]
     Active Substance: ACETAMINOPHEN
     Indication: PYREXIA
     Dosage: 3 G DAILY
     Route: 048
     Dates: start: 20170319, end: 20170326

REACTIONS (5)
  - Pain in extremity [Recovered/Resolved]
  - Hepatocellular injury [Recovered/Resolved]
  - Pneumonia [Recovered/Resolved]
  - Hepatotoxicity [None]
  - Hyperthermia [Recovered/Resolved]

NARRATIVE: CASE EVENT DATE: 20170319
